FAERS Safety Report 5602314-6 (Version None)
Quarter: 2008Q1

REPORT INFORMATION
  Report Type: 
  Country: None (occurrence: None)
  Receive Date: 20080125
  Receipt Date: 20080118
  Transmission Date: 20080703
  Serious: Yes (Hospitalization)
  Sender: FDA-Public Use
  Company Number: US-ROCHE-540285

PATIENT
  Age: 76 Year
  Sex: Female

DRUGS (4)
  1. BONIVA [Suspect]
     Indication: OSTEOPOROSIS
     Route: 065
     Dates: start: 20080107
  2. ALLOPURINOL [Concomitant]
  3. VITAMIN [Concomitant]
     Dosage: DRUG REPORTED AS VITAMINS
  4. TRIAMTERENE AND HYDROCHLOROTHIAZIDE [Concomitant]
     Dosage: DRUG REPORTED AS TRIAMT-HCTZ

REACTIONS (2)
  - ANXIETY [None]
  - PHARYNGOLARYNGEAL PAIN [None]
